FAERS Safety Report 16164911 (Version 1)
Quarter: 2019Q2

REPORT INFORMATION
  Report Type: Spontaneous
  Country: AR (occurrence: AR)
  Receive Date: 20190405
  Receipt Date: 20190405
  Transmission Date: 20190711
  Serious: Yes (Other)
  Sender: FDA-Public Use
  Company Number: AR-ABBVIE-19K-007-2668642-00

PATIENT
  Age: 68 Year
  Sex: Male

DRUGS (5)
  1. PREDNISONE. [Concomitant]
     Active Substance: PREDNISONE
     Indication: CROHN^S DISEASE
     Dosage: DOSE DECREASED GRADUALLY
     Route: 048
     Dates: start: 20170508
  2. HUMIRA [Suspect]
     Active Substance: ADALIMUMAB
     Indication: CROHN^S DISEASE
     Route: 058
     Dates: start: 20170906, end: 20171120
  3. BCG [Concomitant]
     Active Substance: BCG VACCINE
     Indication: PRODUCT USED FOR UNKNOWN INDICATION
  4. MESALAZINE [Concomitant]
     Active Substance: MESALAMINE
     Indication: CROHN^S DISEASE
     Route: 048
  5. PREDNISONE. [Concomitant]
     Active Substance: PREDNISONE
     Dates: start: 20171120

REACTIONS (6)
  - Latent tuberculosis [Unknown]
  - White blood cell count increased [Unknown]
  - Hyperthermia [Not Recovered/Not Resolved]
  - Haematocrit decreased [Unknown]
  - Malaise [Unknown]
  - Gastrointestinal wall thickening [Unknown]

NARRATIVE: CASE EVENT DATE: 20171023
